FAERS Safety Report 4934923-1 (Version None)
Quarter: 2006Q1

REPORT INFORMATION
  Report Type: 
  Country: None (occurrence: None)
  Receive Date: 20060306
  Receipt Date: 20060306
  Transmission Date: 20060701
  Serious: Yes (Disabling)
  Sender: FDA-Public Use
  Company Number: None

PATIENT
  Age: 50 Year
  Sex: Female
  Weight: 8.03 kg

DRUGS (1)
  1. METHYLPREDNISOLONE [Suspect]
     Indication: STATUS ASTHMATICUS
     Dosage: 60 M Q12H IV
     Route: 042
     Dates: start: 20051230, end: 20051231

REACTIONS (3)
  - ASTHMA [None]
  - COUGH [None]
  - DYSPNOEA [None]
